FAERS Safety Report 12598981 (Version 2)
Quarter: 2017Q3

REPORT INFORMATION
  Report Type: Spontaneous
  Country: GB (occurrence: GB)
  Receive Date: 20160727
  Receipt Date: 20170807
  Transmission Date: 20171127
  Serious: Yes (Other)
  Sender: FDA-Public Use
  Company Number: GB-TEVA-678409ACC

PATIENT
  Sex: Male

DRUGS (5)
  1. PAROXETINE HYDROCHLORIDE. [Suspect]
     Active Substance: PAROXETINE HYDROCHLORIDE
     Dosage: 10MG/5ML
     Route: 065
     Dates: start: 20040908, end: 20051010
  2. PAROXETINE HYDROCHLORIDE. [Suspect]
     Active Substance: PAROXETINE HYDROCHLORIDE
     Indication: DEPRESSION
     Dosage: 20 MILLIGRAM DAILY;
     Route: 065
     Dates: start: 19971117
  3. PAROXETINE HYDROCHLORIDE. [Suspect]
     Active Substance: PAROXETINE HYDROCHLORIDE
     Dosage: 20 MILLIGRAM DAILY;
     Route: 065
     Dates: start: 20040126, end: 20040608
  4. PAROXETINE HYDROCHLORIDE. [Suspect]
     Active Substance: PAROXETINE HYDROCHLORIDE
     Dosage: 10 MILLIGRAM DAILY; 10MG
     Route: 065
     Dates: start: 20041124, end: 20051010
  5. PAROXETINE HYDROCHLORIDE. [Suspect]
     Active Substance: PAROXETINE HYDROCHLORIDE
     Dosage: 30 MILLIGRAM DAILY;
     Route: 065
     Dates: start: 19971208, end: 20040121

REACTIONS (22)
  - Tinnitus [Unknown]
  - Dizziness [Unknown]
  - Agitation [Unknown]
  - Mood swings [Unknown]
  - Sleep disorder [Unknown]
  - Arthralgia [Unknown]
  - Night sweats [Unknown]
  - Dry eye [Unknown]
  - Rash [Unknown]
  - Chest pain [Unknown]
  - Aggression [Unknown]
  - Muscle spasms [Unknown]
  - Tension [Unknown]
  - Drug withdrawal syndrome [Unknown]
  - Suicidal ideation [Unknown]
  - Influenza like illness [Unknown]
  - Myalgia [Unknown]
  - Paraesthesia [Unknown]
  - Confusional state [Unknown]
  - Skin lesion [Unknown]
  - Abdominal distension [Unknown]
  - Akathisia [Unknown]

NARRATIVE: CASE EVENT DATE: 20040212
